FAERS Safety Report 23382336 (Version 1)
Quarter: 2024Q1

REPORT INFORMATION
  Report Type: Spontaneous
  Country: US (occurrence: US)
  Receive Date: 20240109
  Receipt Date: 20240109
  Transmission Date: 20240410
  Serious: Yes (Other)
  Sender: FDA-Public Use
  Company Number: US-TEVA-VS-3141430

PATIENT
  Age: 38 Year

DRUGS (1)
  1. CLARAVIS [Suspect]
     Active Substance: ISOTRETINOIN
     Indication: Product used for unknown indication
     Route: 048
     Dates: start: 20230715, end: 20230726

REACTIONS (6)
  - Confusional state [Unknown]
  - Dysgeusia [Unknown]
  - Paraesthesia [Unknown]
  - Vision blurred [Unknown]
  - Toothache [Unknown]
  - Palpitations [Unknown]

NARRATIVE: CASE EVENT DATE: 20230718
